FAERS Safety Report 7542320-8 (Version None)
Quarter: 2011Q2

REPORT INFORMATION
  Report Type: 
  Country: None (occurrence: None)
  Receive Date: 20110613
  Receipt Date: 20110602
  Transmission Date: 20111010
  Serious: Yes (Other)
  Sender: FDA-Public Use
  Company Number: US-ASTRAZENECA-2011SE31199

PATIENT
  Age: 68 Year
  Sex: Female

DRUGS (2)
  1. BYSTOLIC [Suspect]
     Route: 065
  2. ATACAND [Suspect]
     Route: 048

REACTIONS (5)
  - OVARIAN CANCER [None]
  - BRADYCARDIA [None]
  - LETHARGY [None]
  - GASTRIC DISORDER [None]
  - TOOTH DISORDER [None]
